FAERS Safety Report 7633816-9 (Version None)
Quarter: 2011Q3

REPORT INFORMATION
  Report Type: 
  Country: None (occurrence: None)
  Receive Date: 20110725
  Receipt Date: 20110713
  Transmission Date: 20111222
  Serious: Yes (Hospitalization)
  Sender: FDA-Public Use
  Company Number: US-ACTELION-A-NJ2011-50563

PATIENT

DRUGS (2)
  1. TRACLEER [Suspect]
     Indication: PULMONARY ARTERIAL HYPERTENSION
     Dosage: UNK
     Route: 048
     Dates: start: 20110331, end: 20110701
  2. TRACLEER [Suspect]
     Dosage: UNK
     Route: 048
     Dates: start: 20110701

REACTIONS (2)
  - BLOOD CREATININE INCREASED [None]
  - CHOLECYSTECTOMY [None]
